FAERS Safety Report 19661386 (Version 1)
Quarter: 2021Q3

REPORT INFORMATION
  Report Type: Spontaneous
  Country: US (occurrence: US)
  Receive Date: 20210805
  Receipt Date: 20210805
  Transmission Date: 20211014
  Serious: Yes (Other)
  Sender: FDA-Public Use
  Company Number: US-PFIZER INC-202100955362

PATIENT
  Age: 56 Year
  Sex: Female

DRUGS (5)
  1. LETROZOLE. [Suspect]
     Active Substance: LETROZOLE
     Indication: BREAST CANCER METASTATIC
     Dosage: UNK
     Dates: start: 20191007
  2. IBRANCE [Suspect]
     Active Substance: PALBOCICLIB
     Dosage: 100 MG
     Dates: start: 2021, end: 2021
  3. IBRANCE [Suspect]
     Active Substance: PALBOCICLIB
     Indication: BREAST CANCER METASTATIC
     Dosage: 100 MG, CYCLIC
     Dates: start: 20191007, end: 202101
  4. IBRANCE [Suspect]
     Active Substance: PALBOCICLIB
     Dosage: 125 MG
     Dates: start: 2021, end: 2021
  5. IBRANCE [Suspect]
     Active Substance: PALBOCICLIB
     Dosage: UNK, CYCLIC (4 DAYS ON 2 DAYS OFF)
     Dates: start: 202104, end: 2021

REACTIONS (12)
  - Myalgia [Unknown]
  - White blood cell count decreased [Unknown]
  - Oral pain [Unknown]
  - Neutropenia [Unknown]
  - Cellulitis [Unknown]
  - Bone pain [Unknown]
  - Alopecia [Unknown]
  - Pulmonary mass [Unknown]
  - Fatigue [Unknown]
  - Escherichia bacteraemia [Unknown]
  - Stomatitis [Unknown]
  - Dry skin [Unknown]

NARRATIVE: CASE EVENT DATE: 2021
